FAERS Safety Report 6256321-3 (Version None)
Quarter: 2009Q2

REPORT INFORMATION
  Report Type: 
  Country: None (occurrence: None)
  Receive Date: 20090630
  Receipt Date: 20090630
  Transmission Date: 20091009
  Serious: Yes (Disabling)
  Sender: FDA-Public Use
  Company Number: None

PATIENT
  Sex: Female
  Weight: 49.8957 kg

DRUGS (1)
  1. MIRENA [Suspect]
     Indication: MENORRHAGIA
     Dosage: INTRA-UTERINE
     Route: 015
     Dates: start: 20081114, end: 20090626

REACTIONS (2)
  - OEDEMA PERIPHERAL [None]
  - OVARIAN CYST [None]
